FAERS Safety Report 10262256 (Version 1)
Quarter: 2014Q2

REPORT INFORMATION
  Report Type: Spontaneous
  Country: US (occurrence: US)
  Receive Date: 20140626
  Receipt Date: 20140626
  Transmission Date: 20141212
  Serious: No
  Sender: FDA-Public Use
  Company Number: US-TEVA-490765USA

PATIENT
  Age: 22 Year
  Sex: Female
  Weight: 88.98 kg

DRUGS (2)
  1. PARAGARD 380A [Suspect]
     Indication: CONTRACEPTION
     Route: 015
     Dates: start: 20130429, end: 20130828
  2. PARAGARD 380A [Suspect]
     Route: 015
     Dates: start: 20131004

REACTIONS (3)
  - Device expulsion [Recovered/Resolved]
  - Pregnancy with contraceptive device [Unknown]
  - Exposure during pregnancy [Unknown]
